FAERS Safety Report 9435010 (Version 2)
Quarter: 2013Q3

REPORT INFORMATION
  Report Type: Spontaneous
  Country: CN (occurrence: None)
  Receive Date: 20130730
  Receipt Date: 20130821
  Transmission Date: 20140515
  Serious: Yes (Other)
  Sender: FDA-Public Use
  Company Number: 2013P1013151

PATIENT
  Age: 39 Year
  Sex: Female

DRUGS (3)
  1. ALBENDAZOLE [Suspect]
     Indication: INFESTATION
     Dosage: 2 TABLETS?
     Route: 048
     Dates: start: 201306, end: 201306
  2. LEVOFLOXACIN [Suspect]
     Indication: ENDOMETRITIS
     Dosage: ?
     Dates: start: 201306, end: 201306
  3. ORNIDAZOLE [Suspect]
     Indication: ENDOMETRITIS
     Dates: start: 201306, end: 201306

REACTIONS (11)
  - Skin discolouration [None]
  - Musculoskeletal stiffness [None]
  - Headache [None]
  - Asthenia [None]
  - Hypoaesthesia [None]
  - Feeling hot [None]
  - Overdose [None]
  - Liver injury [None]
  - Endometritis [None]
  - Acute hepatic failure [None]
  - Hepatotoxicity [None]
